FAERS Safety Report 6771257-7 (Version None)
Quarter: 2010Q2

REPORT INFORMATION
  Report Type: 
  Country: None (occurrence: None)
  Receive Date: 20100616
  Receipt Date: 20100605
  Transmission Date: 20101027
  Serious: Yes (Other)
  Sender: FDA-Public Use
  Company Number: CA-JNJFOC-20100603151

PATIENT
  Sex: Male
  Weight: 48 kg

DRUGS (1)
  1. REMICADE [Suspect]
     Indication: CROHN'S DISEASE
     Route: 042

REACTIONS (4)
  - CYANOSIS [None]
  - GRAND MAL CONVULSION [None]
  - INFUSION RELATED REACTION [None]
  - VOMITING [None]
